FAERS Safety Report 15022469 (Version 4)
Quarter: 2020Q1

REPORT INFORMATION
  Report Type: Report from Study
  Country: JP (occurrence: JP)
  Receive Date: 20180618
  Receipt Date: 20200101
  Transmission Date: 20200409
  Serious: Yes (Death, Life-Threatening)
  Sender: FDA-Public Use
  Company Number: JP-ACTELION-A-CH2018-173906

PATIENT
  Age: 74 Year
  Sex: Female

DRUGS (10)
  1. BONALON [Concomitant]
     Active Substance: ALENDRONATE SODIUM
  2. OXYGEN. [Concomitant]
     Active Substance: OXYGEN
  3. REVATIO [Concomitant]
     Active Substance: SILDENAFIL CITRATE
  4. LANSOPRAZOLE. [Concomitant]
     Active Substance: LANSOPRAZOLE
  5. PREDNISOLONE. [Concomitant]
     Active Substance: PREDNISOLONE
  6. OPSUMIT [Suspect]
     Active Substance: MACITENTAN
     Indication: PULMONARY ARTERIAL HYPERTENSION
     Dosage: 10 MG, UNK
     Route: 048
     Dates: start: 20171215, end: 20180501
  7. GLUCONSAN K [Concomitant]
     Active Substance: POTASSIUM GLUCONATE
  8. BERASUS [Concomitant]
     Active Substance: BERAPROST SODIUM
  9. CILNIDIPINE [Concomitant]
     Active Substance: CILNIDIPINE
  10. DAIPHEN [Concomitant]
     Active Substance: SULFAMETHOXAZOLE\TRIMETHOPRIM

REACTIONS (4)
  - Pyelonephritis [Not Recovered/Not Resolved]
  - General physical health deterioration [Fatal]
  - Ileus [Not Recovered/Not Resolved]
  - Systemic scleroderma [Fatal]

NARRATIVE: CASE EVENT DATE: 20180426
